FAERS Safety Report 25725508 (Version 1)
Quarter: 2025Q3

REPORT INFORMATION
  Report Type: Spontaneous
  Country: EU (occurrence: EU)
  Receive Date: 20250826
  Receipt Date: 20250826
  Transmission Date: 20251021
  Serious: Yes (Other)
  Sender: AUROBINDO
  Company Number: EU-SANDOZ-SDZ2025FR053145

PATIENT
  Age: 39 Year
  Sex: Male

DRUGS (6)
  1. MONTELUKAST [Suspect]
     Active Substance: MONTELUKAST
     Indication: Product used for unknown indication
     Route: 048
  2. MOMETASONE FUROATE [Suspect]
     Active Substance: MOMETASONE FUROATE
     Indication: Product used for unknown indication
  3. BILASTINE [Suspect]
     Active Substance: BILASTINE
     Indication: Product used for unknown indication
     Dosage: 20 MG,1 AT NIGHT
     Route: 048
     Dates: start: 2021
  4. ERELZI [Suspect]
     Active Substance: ETANERCEPT-SZZS
     Indication: Polyarthritis
     Dosage: 50 MG, QW
     Route: 058
  5. ERELZI [Suspect]
     Active Substance: ETANERCEPT-SZZS
     Dosage: 50 MG, QW(1 INJECTION WITHIN 7 DAYS )
     Route: 058
     Dates: start: 20250429
  6. INNOVAIR [Suspect]
     Active Substance: BECLOMETHASONE DIPROPIONATE\FORMOTEROL
     Indication: Product used for unknown indication
     Dates: start: 2017

REACTIONS (3)
  - Haematoma [Unknown]
  - Injection site pain [Unknown]
  - Product availability issue [Unknown]
